FAERS Safety Report 14481954 (Version 1)
Quarter: 2018Q1

REPORT INFORMATION
  Report Type: Spontaneous
  Country: US (occurrence: US)
  Receive Date: 20180202
  Receipt Date: 20180202
  Transmission Date: 20180509
  Serious: Yes (Hospitalization)
  Sender: FDA-Public Use
  Company Number: None

PATIENT
  Age: 71 Year
  Sex: Male
  Weight: 76.95 kg

DRUGS (1)
  1. GOCOVRI [Suspect]
     Active Substance: AMANTADINE
     Indication: PARKINSON^S DISEASE
     Dates: start: 20171201, end: 20180103

REACTIONS (1)
  - Hallucination [None]

NARRATIVE: CASE EVENT DATE: 20180105
